FAERS Safety Report 6936862-3 (Version None)
Quarter: 2010Q3

REPORT INFORMATION
  Report Type: 
  Country: None (occurrence: None)
  Receive Date: 20100818
  Receipt Date: 20100809
  Transmission Date: 20110219
  Serious: Yes (Hospitalization)
  Sender: FDA-Public Use
  Company Number: 2010US003201

PATIENT
  Age: 55 Year
  Sex: Male

DRUGS (17)
  1. PROGRAF [Suspect]
     Indication: RENAL TRANSPLANT
     Dosage: 0.5 MG, UID/QD, ORAL
     Route: 048
     Dates: start: 20090420
  2. TAMSULOSIN (TAMSULOSIN) CAPSULE [Concomitant]
  3. NORVASC [Concomitant]
  4. ROCALTROL [Concomitant]
  5. CLONIDINE [Concomitant]
  6. FLONASE [Concomitant]
  7. HYDRALAZINE HCL [Concomitant]
  8. MEGACE [Concomitant]
  9. METOPROLOL SUCCINATE [Concomitant]
  10. MYFORTIC [Concomitant]
  11. PRILOSEC (OMEPRAZOLE) [Concomitant]
  12. PREDNISONE [Concomitant]
  13. ZOCOR [Concomitant]
  14. JANUVIA [Concomitant]
  15. BACTRIM DS [Concomitant]
  16. VANCOMYCIN [Concomitant]
  17. COUMADIN [Concomitant]

REACTIONS (3)
  - HAEMATOCRIT DECREASED [None]
  - HAEMOGLOBIN DECREASED [None]
  - HIP FRACTURE [None]
